FAERS Safety Report 26218908 (Version 1)
Quarter: 2025Q4

REPORT INFORMATION
  Report Type: Spontaneous
  Country: EU (occurrence: EU)
  Receive Date: 20251231
  Receipt Date: 20251231
  Transmission Date: 20260118
  Serious: Yes (Hospitalization)
  Sender: PFIZER
  Company Number: EU-MLMSERVICE-20251218-PI752124-00272-2

PATIENT
  Age: 51 Year
  Sex: Female

DRUGS (6)
  1. MEDROXYPROGESTERONE ACETATE [Interacting]
     Active Substance: MEDROXYPROGESTERONE ACETATE
     Indication: Menstruation irregular
     Dosage: ONE INJECTION OF DEPOT MEDROXYPROGESTERONE ACETATE
  2. TRAZODONE [Interacting]
     Active Substance: TRAZODONE HYDROCHLORIDE
     Indication: Sleep disorder
  3. TRAZODONE [Interacting]
     Active Substance: TRAZODONE HYDROCHLORIDE
     Dosage: 75 MG, 1X/DAY
  4. ESTRIOL [Interacting]
     Active Substance: ESTRIOL
     Indication: Vulvovaginal discomfort
     Dosage: 1 MG/G, THREE TIMES WEEKLY
     Route: 067
  5. PREGABALIN [Interacting]
     Active Substance: PREGABALIN
     Indication: Vulvovaginal discomfort
     Dosage: 150 MG, 1X/DAY
  6. PREGABALIN [Interacting]
     Active Substance: PREGABALIN
     Dosage: 300 MG, 1X/DAY

REACTIONS (3)
  - Persistent genital arousal disorder [Recovered/Resolved]
  - Potentiating drug interaction [Recovered/Resolved]
  - Off label use [Unknown]
